FAERS Safety Report 17851561 (Version 6)
Quarter: 2020Q4

REPORT INFORMATION
  Report Type: Spontaneous
  Country: US (occurrence: US)
  Receive Date: 20200602
  Receipt Date: 20201231
  Transmission Date: 20210113
  Serious: No
  Sender: FDA-Public Use
  Company Number: US-GLAXOSMITHKLINE-US2020AMR090957

PATIENT
  Sex: Female

DRUGS (6)
  1. ZEJULA [Suspect]
     Active Substance: NIRAPARIB
     Indication: OVARIAN CANCER
     Dosage: 200 MG, QD
     Dates: start: 20200515
  2. ZEJULA [Suspect]
     Active Substance: NIRAPARIB
     Dosage: UNK 100MG ONCE DAILY, ALTERNATING WITH 200MG ONCE DAILY
  3. ZEJULA [Suspect]
     Active Substance: NIRAPARIB
     Dosage: UNK  (100MG ONCE DAILY, ALTERNATING WITH 200MG ONCE DAILY)
     Dates: end: 20201223
  4. ZEJULA [Suspect]
     Active Substance: NIRAPARIB
     Dosage: 100 MG, QD
     Route: 048
  5. ZEJULA [Suspect]
     Active Substance: NIRAPARIB
     Dosage: 100 MG, QD
     Route: 048
  6. ZEJULA [Suspect]
     Active Substance: NIRAPARIB
     Dosage: 200 MG, QD (IN MORNING)
     Dates: start: 20200518

REACTIONS (8)
  - Back pain [Unknown]
  - Fall [Unknown]
  - Drug ineffective [Unknown]
  - Product use issue [Unknown]
  - Insomnia [Recovered/Resolved]
  - Constipation [Unknown]
  - Fatigue [Unknown]
  - White blood cell count decreased [Unknown]
